FAERS Safety Report 25184569 (Version 1)
Quarter: 2025Q2

REPORT INFORMATION
  Report Type: Spontaneous
  Country: SE (occurrence: SE)
  Receive Date: 20250410
  Receipt Date: 20250410
  Transmission Date: 20250716
  Serious: Yes (Death, Other)
  Sender: BAYER
  Company Number: SE-BAYER-2025A046044

PATIENT
  Sex: Female

DRUGS (1)
  1. LEVONORGESTREL [Suspect]
     Active Substance: LEVONORGESTREL
     Route: 015

REACTIONS (1)
  - Sepsis [Fatal]
